FAERS Safety Report 7717486-7 (Version None)
Quarter: 2011Q3

REPORT INFORMATION
  Report Type: 
  Country: None (occurrence: None)
  Receive Date: 20110824
  Receipt Date: 20110822
  Transmission Date: 20111222
  Serious: Yes (Other)
  Sender: FDA-Public Use
  Company Number: 201111026

PATIENT
  Sex: Female

DRUGS (5)
  1. MARCAINE [Concomitant]
  2. CLONIDINE [Concomitant]
  3. LIORESAL [Suspect]
     Indication: MUSCLE SPASTICITY
     Dosage: 194.8 MCG, DAILY, INTRATHECAL
     Route: 037
  4. FENTANYL-100 [Concomitant]
  5. PRIALT [Concomitant]

REACTIONS (4)
  - MUSCULAR WEAKNESS [None]
  - SPINAL CORD COMPRESSION [None]
  - CATHETER SITE INFLAMMATION [None]
  - GRANULOMA [None]
